FAERS Safety Report 7680571-2 (Version None)
Quarter: 2011Q3

REPORT INFORMATION
  Report Type: 
  Country: None (occurrence: None)
  Receive Date: 20110812
  Receipt Date: 20110802
  Transmission Date: 20111222
  Serious: Yes (Hospitalization)
  Sender: FDA-Public Use
  Company Number: US-JNJFOC-20101108445

PATIENT
  Sex: Male
  Weight: 67.5 kg

DRUGS (10)
  1. MESALAMINE [Concomitant]
  2. FOLIC ACID [Concomitant]
  3. PROBIOTICS [Concomitant]
  4. REMICADE [Suspect]
     Indication: INFLAMMATORY BOWEL DISEASE
     Route: 042
     Dates: start: 20020111, end: 20030417
  5. METHOTREXATE [Concomitant]
  6. MONTELUKAST SODIUM [Concomitant]
  7. BUDESONIDE [Concomitant]
  8. HUMIRA [Concomitant]
     Indication: INFLAMMATORY BOWEL DISEASE
     Dates: start: 20080909
  9. CEFTRIAXONE [Concomitant]
  10. ASMANEX TWISTHALER [Concomitant]

REACTIONS (1)
  - PNEUMONIA [None]
